FAERS Safety Report 11465109 (Version 2)
Quarter: 2015Q3

REPORT INFORMATION
  Report Type: Spontaneous
  Country: JP (occurrence: JP)
  Receive Date: 20150907
  Receipt Date: 20150916
  Transmission Date: 20151125
  Serious: Yes (Death, Hospitalization)
  Sender: FDA-Public Use
  Company Number: JP-PFIZER INC-2015284030

PATIENT
  Age: 74 Year
  Sex: Male
  Weight: 54 kg

DRUGS (1)
  1. SUTENT [Suspect]
     Active Substance: SUNITINIB MALATE
     Indication: METASTATIC RENAL CELL CARCINOMA
     Dosage: 37.5 MG DAILY, 2-WEEKS-ON AND 1-WEEK-OFF SCHEDULE
     Route: 048
     Dates: start: 20150716, end: 20150729

REACTIONS (4)
  - Metastatic renal cell carcinoma [Fatal]
  - Disease progression [Fatal]
  - Pleural effusion [Recovering/Resolving]
  - Cardiac failure [Recovering/Resolving]

NARRATIVE: CASE EVENT DATE: 20150805
